FAERS Safety Report 17101869 (Version 1)
Quarter: 2019Q4

REPORT INFORMATION
  Report Type: Spontaneous
  Country: FR (occurrence: FR)
  Receive Date: 20191202
  Receipt Date: 20191202
  Transmission Date: 20200122
  Serious: Yes (Other)
  Sender: FDA-Public Use
  Company Number: FR-MYLANLABS-2019M1116951

PATIENT
  Age: 63 Year
  Sex: Female

DRUGS (3)
  1. ZECLAR [Suspect]
     Active Substance: CLARITHROMYCIN
     Indication: ATYPICAL MYCOBACTERIAL INFECTION
     Dosage: 1000 MILLIGRAM, QD
     Route: 048
     Dates: start: 2019, end: 2019
  2. DEXAMBUTOL [Suspect]
     Active Substance: ETHAMBUTOL HYDROCHLORIDE
     Indication: ATYPICAL MYCOBACTERIAL INFECTION
     Dosage: 1000 MILLIGRAM, QD
     Route: 048
     Dates: start: 2019, end: 2019
  3. RIFADINE                           /00146901/ [Suspect]
     Active Substance: RIFAMPIN
     Indication: ATYPICAL MYCOBACTERIAL INFECTION
     Dosage: 600 MILLIGRAM, QD
     Route: 048
     Dates: start: 2019, end: 2019

REACTIONS (1)
  - Optic neuropathy [Recovered/Resolved]

NARRATIVE: CASE EVENT DATE: 2019
